FAERS Safety Report 26218852 (Version 1)
Quarter: 2025Q4

REPORT INFORMATION
  Report Type: Spontaneous
  Country: US (occurrence: US)
  Receive Date: 20251231
  Receipt Date: 20251231
  Transmission Date: 20260117
  Serious: No
  Sender: MERCK SHARP & DOHME LLC
  Company Number: US-009507513-2365608

PATIENT
  Sex: Female

DRUGS (5)
  1. SOTATERCEPT-CSRK [Suspect]
     Active Substance: SOTATERCEPT-CSRK
     Indication: Product used for unknown indication
     Route: 065
  2. SOTATERCEPT-CSRK [Suspect]
     Active Substance: SOTATERCEPT-CSRK
     Dosage: 2ND DOSE
     Route: 065
  3. SOTATERCEPT-CSRK [Suspect]
     Active Substance: SOTATERCEPT-CSRK
  4. SOTATERCEPT-CSRK [Suspect]
     Active Substance: SOTATERCEPT-CSRK
  5. REMODULIN [Suspect]
     Active Substance: TREPROSTINIL
     Dosage: CONCENTRATION 2.5 MG/ML; 0.034 ?G/KG, CONTINUING, IV DRIP
     Route: 042
     Dates: start: 202104

REACTIONS (3)
  - Heavy menstrual bleeding [Unknown]
  - Gingival bleeding [Unknown]
  - Epistaxis [Unknown]
